FAERS Safety Report 14321280 (Version 1)
Quarter: 2017Q4

REPORT INFORMATION
  Report Type: Spontaneous
  Country: IT (occurrence: IT)
  Receive Date: 20171223
  Receipt Date: 20171223
  Transmission Date: 20180321
  Serious: Yes (Hospitalization)
  Sender: FDA-Public Use
  Company Number: PHHY2017IT193462

PATIENT
  Age: 62 Year
  Sex: Male

DRUGS (1)
  1. OXALIPLATIN. [Suspect]
     Active Substance: OXALIPLATIN
     Indication: RECTOSIGMOID CANCER
     Dosage: 85 MG, CYCLIC
     Route: 042
     Dates: start: 20170622, end: 20171106

REACTIONS (1)
  - Neuronal neuropathy [Recovering/Resolving]

NARRATIVE: CASE EVENT DATE: 20171106
